FAERS Safety Report 12317985 (Version 1)
Quarter: 2016Q2

REPORT INFORMATION
  Report Type: Spontaneous
  Country: US (occurrence: US)
  Receive Date: 20160429
  Receipt Date: 20160429
  Transmission Date: 20160815
  Serious: No
  Sender: FDA-Public Use
  Company Number: US-DUSA PHARMACEUTICALS, INC.-1051193

PATIENT
  Age: 70 Year
  Sex: Male

DRUGS (7)
  1. FISH OIL [Concomitant]
     Active Substance: FISH OIL
  2. LEVULAN KERASTICK [Suspect]
     Active Substance: AMINOLEVULINIC ACID HYDROCHLORIDE
     Indication: ACTINIC KERATOSIS
     Route: 061
     Dates: start: 20151023, end: 20151023
  3. PROPENAFONE [Concomitant]
  4. HYDROCHLOROTHIAZIDE. [Concomitant]
     Active Substance: HYDROCHLOROTHIAZIDE
  5. LORAZEPAM. [Concomitant]
     Active Substance: LORAZEPAM
  6. ELIQUIS [Concomitant]
     Active Substance: APIXABAN
  7. MULTIVITAMIN [Concomitant]
     Active Substance: VITAMINS

REACTIONS (4)
  - Application site pruritus [Recovered/Resolved]
  - Application site discolouration [Recovered/Resolved with Sequelae]
  - Application site pain [Recovered/Resolved]
  - Application site erythema [Recovered/Resolved with Sequelae]

NARRATIVE: CASE EVENT DATE: 20151029
